FAERS Safety Report 23019738 (Version 2)
Quarter: 2023Q4

REPORT INFORMATION
  Report Type: Spontaneous
  Country: US (occurrence: US)
  Receive Date: 20231003
  Receipt Date: 20231006
  Transmission Date: 20240110
  Serious: Yes (Other)
  Sender: FDA-Public Use
  Company Number: US-MLMSERVICE-20230908-4535547-1

PATIENT

DRUGS (1)
  1. ATORVASTATIN [Suspect]
     Active Substance: ATORVASTATIN
     Indication: Product used for unknown indication
     Dosage: 10 MG ATORVASTATIN DAILY FOR GREATER THAN 1 YEAR
     Route: 065

REACTIONS (2)
  - Haematoma [Recovering/Resolving]
  - Muscle rupture [Recovering/Resolving]
